FAERS Safety Report 5696352-5 (Version None)
Quarter: 2008Q2

REPORT INFORMATION
  Report Type: 
  Country: None (occurrence: None)
  Receive Date: 20080408
  Receipt Date: 20080326
  Transmission Date: 20081010
  Serious: Yes (Hospitalization)
  Sender: FDA-Public Use
  Company Number: NL-PFIZER INC-2008025643

PATIENT
  Sex: Male
  Weight: 75 kg

DRUGS (5)
  1. DETRUSITOL SR [Suspect]
     Indication: URGE INCONTINENCE
     Route: 048
     Dates: start: 20080131, end: 20080304
  2. DILTIAZEM [Concomitant]
     Route: 048
  3. TOLBUTAMIDE [Concomitant]
     Route: 048
  4. ALLOPURINOL [Concomitant]
     Route: 048
  5. LOSARTAN POTASSIUM [Concomitant]
     Route: 048

REACTIONS (1)
  - ARTHRITIS [None]
